FAERS Safety Report 6156671-5 (Version None)
Quarter: 2009Q2

REPORT INFORMATION
  Report Type: 
  Country: None (occurrence: None)
  Receive Date: 20090413
  Receipt Date: 20090413
  Transmission Date: 20091009
  Serious: No
  Sender: FDA-Public Use
  Company Number: None

PATIENT
  Sex: Female

DRUGS (1)
  1. NEUTROGENA, OIL-FREE ACNE WASH [Suspect]

REACTIONS (3)
  - APPLICATION SITE REACTION [None]
  - EYE SWELLING [None]
  - SWELLING FACE [None]
